FAERS Safety Report 13248191 (Version 1)
Quarter: 2017Q1

REPORT INFORMATION
  Report Type: Spontaneous
  Country: AE (occurrence: AE)
  Receive Date: 20170217
  Receipt Date: 20170217
  Transmission Date: 20170428
  Serious: Yes (Other)
  Sender: FDA-Public Use
  Company Number: AE-ALLERGAN-1705927US

PATIENT

DRUGS (1)
  1. BOTOX [Suspect]
     Active Substance: ONABOTULINUMTOXINA
     Indication: WEIGHT DECREASED
     Dosage: UNK, SINGLE
     Route: 030

REACTIONS (2)
  - Gastrointestinal necrosis [Unknown]
  - Off label use [Unknown]
